FAERS Safety Report 18602587 (Version 3)
Quarter: 2021Q3

REPORT INFORMATION
  Report Type: Spontaneous
  Country: JP (occurrence: JP)
  Receive Date: 20201211
  Receipt Date: 20210708
  Transmission Date: 20211014
  Serious: Yes (Other)
  Sender: FDA-Public Use
  Company Number: JP-TAKEDA-2020TJP026805

PATIENT
  Age: 33 Year
  Sex: Female

DRUGS (1)
  1. TRINTELLIX [Suspect]
     Active Substance: VORTIOXETINE HYDROBROMIDE
     Indication: PERINATAL DEPRESSION
     Dosage: UNK
     Route: 048
     Dates: start: 202001

REACTIONS (2)
  - Aggression [Unknown]
  - Homicide [Unknown]

NARRATIVE: CASE EVENT DATE: 20200423
